FAERS Safety Report 6736715-X (Version None)
Quarter: 2010Q2

REPORT INFORMATION
  Report Type: 
  Country: None (occurrence: None)
  Receive Date: 20100521
  Receipt Date: 20100513
  Transmission Date: 20101027
  Serious: Yes (Disabling)
  Sender: FDA-Public Use
  Company Number: PHHY2010US31318

PATIENT
  Sex: Male

DRUGS (3)
  1. EXTAVIA [Suspect]
     Indication: MULTIPLE SCLEROSIS
     Dosage: 0.25 MG, QOD
     Route: 058
     Dates: start: 20100201
  2. VITAMIN B-12 [Concomitant]
     Dosage: 1 DF, QD
  3. IBUPROFEN [Concomitant]
     Dosage: 200 MG PRN

REACTIONS (3)
  - MUSCULOSKELETAL STIFFNESS [None]
  - NIPPLE PAIN [None]
  - PAIN [None]
